FAERS Safety Report 5351277-X (Version None)
Quarter: 2007Q2

REPORT INFORMATION
  Report Type: 
  Country: None (occurrence: None)
  Receive Date: 20070608
  Receipt Date: 20070529
  Transmission Date: 20071010
  Serious: Yes (Life-Threatening, Hospitalization, Disabling)
  Sender: FDA-Public Use
  Company Number: US-PFIZER INC-2007044290

PATIENT
  Age: 36 Year
  Sex: Male

DRUGS (9)
  1. ZITHROMAX [Suspect]
  2. LAMICTAL [Suspect]
     Indication: BIPOLAR DISORDER
     Route: 048
     Dates: start: 20061023, end: 20061121
  3. OMNICEF [Suspect]
     Indication: PHARYNGITIS
  4. MEDROL [Suspect]
  5. VICODIN [Suspect]
  6. SERTRALINE HYDROCHLORIDE [Concomitant]
  7. MOMETASONE FUROATE [Concomitant]
  8. SUMATRIPTAN SUCCINATE [Concomitant]
  9. HYDROCHLOROTHIAZIDE [Concomitant]

REACTIONS (8)
  - BLINDNESS [None]
  - CONJUNCTIVAL SCAR [None]
  - LIP SWELLING [None]
  - OEDEMA PERIPHERAL [None]
  - ORAL MUCOSAL BLISTERING [None]
  - PHARYNGITIS [None]
  - RASH PRURITIC [None]
  - STEVENS-JOHNSON SYNDROME [None]
